FAERS Safety Report 22359554 (Version 1)
Quarter: 2023Q2

REPORT INFORMATION
  Report Type: Spontaneous
  Country: US (occurrence: None)
  Receive Date: 20230523
  Receipt Date: 20230523
  Transmission Date: 20230721
  Serious: Yes (Hospitalization)
  Sender: FDA-Public Use
  Company Number: None

PATIENT
  Age: 77 Year
  Sex: Female

DRUGS (1)
  1. BOSENTAN [Suspect]
     Active Substance: BOSENTAN
     Indication: Pulmonary arterial hypertension
     Dosage: 62.5MG BID ORAL
     Route: 048
     Dates: start: 20190710

REACTIONS (4)
  - Gastrointestinal haemorrhage [None]
  - Respiratory failure [None]
  - Chronic obstructive pulmonary disease [None]
  - Atrial fibrillation [None]

NARRATIVE: CASE EVENT DATE: 20230508
